FAERS Safety Report 17061864 (Version 1)
Quarter: 2019Q4

REPORT INFORMATION
  Report Type: Report from Study
  Country: US (occurrence: US)
  Receive Date: 20191121
  Receipt Date: 20191121
  Transmission Date: 20200122
  Serious: Yes (Hospitalization)
  Sender: FDA-Public Use
  Company Number: PHHO2012US019947

PATIENT
  Age: 71 Year
  Sex: Female
  Weight: 80 kg

DRUGS (2)
  1. LAPATINIB DITOSYLATE [Suspect]
     Active Substance: LAPATINIB DITOSYLATE
     Indication: COLON CANCER METASTATIC
     Dosage: 1250 MG, QD
     Route: 048
     Dates: start: 20120712
  2. BORTEZOMIB. [Suspect]
     Active Substance: BORTEZOMIB
     Indication: COLON CANCER METASTATIC
     Dosage: 1.85 MG, QW
     Route: 042
     Dates: start: 20120712

REACTIONS (4)
  - Incontinence [Recovering/Resolving]
  - Urinary tract infection [Recovering/Resolving]
  - Pain [Recovering/Resolving]
  - Confusional state [Recovering/Resolving]

NARRATIVE: CASE EVENT DATE: 20120802
